FAERS Safety Report 4550103-6 (Version None)
Quarter: 2005Q1

REPORT INFORMATION
  Report Type: 
  Country: None (occurrence: None)
  Receive Date: 20050110
  Receipt Date: 20041228
  Transmission Date: 20050727
  Serious: Yes (Other)
  Sender: FDA-Public Use
  Company Number: 2004121756

PATIENT
  Age: 61 Year
  Sex: Female
  Weight: 77.1115 kg

DRUGS (3)
  1. ZYRTEC [Suspect]
     Indication: HYPERSENSITIVITY
     Dosage: 1O MG (10 MG, 1 IN 1 D), ORAL
     Route: 048
     Dates: start: 20041220, end: 20041227
  2. LEVOTHYROXINE SODIUM [Concomitant]
  3. CONJUGATED ESTROGENS [Concomitant]

REACTIONS (3)
  - INSOMNIA [None]
  - PRURITUS [None]
  - SWOLLEN TONGUE [None]
